FAERS Safety Report 7804284-9 (Version None)
Quarter: 2011Q4

REPORT INFORMATION
  Report Type: 
  Country: None (occurrence: None)
  Receive Date: 20111010
  Receipt Date: 20111005
  Transmission Date: 20120403
  Serious: Yes (Death, Other)
  Sender: FDA-Public Use
  Company Number: PHEH2011US05961

PATIENT
  Sex: Male

DRUGS (3)
  1. BLOOD TRANSFUSION, AUXILIARY PRODUCTS [Concomitant]
  2. PLATELETS [Concomitant]
  3. EXJADE [Suspect]
     Dosage: 1500 MG, QD
     Route: 048

REACTIONS (5)
  - ANAEMIA [None]
  - NEOPLASM MALIGNANT [None]
  - THROMBOCYTOPENIA [None]
  - NEOPLASM PROGRESSION [None]
  - LEUKOPENIA [None]
